FAERS Safety Report 4458965-8 (Version None)
Quarter: 2004Q3

REPORT INFORMATION
  Report Type: 
  Country: None (occurrence: None)
  Receive Date: 20040920
  Receipt Date: 20040920
  Transmission Date: 20050211
  Serious: Yes (Hospitalization, Disabling)
  Sender: FDA-Public Use
  Company Number: None

PATIENT
  Age: 46 Year
  Sex: Male
  Weight: 83.4619 kg

DRUGS (1)
  1. TOPAMAX [Suspect]
     Indication: MIGRAINE
     Dosage: 100 MG 2X A DAY
     Dates: start: 20040803, end: 20040806

REACTIONS (7)
  - ASTHENIA [None]
  - CEREBROVASCULAR ACCIDENT [None]
  - DEAFNESS [None]
  - DIFFICULTY IN WALKING [None]
  - DISORIENTATION [None]
  - FACIAL PALSY [None]
  - SPEECH DISORDER [None]
